FAERS Safety Report 4731651-2 (Version None)
Quarter: 2005Q3

REPORT INFORMATION
  Report Type: 
  Country: None (occurrence: None)
  Receive Date: 20050802
  Receipt Date: 20050727
  Transmission Date: 20060218
  Serious: Yes (Disabling)
  Sender: FDA-Public Use
  Company Number: CA-JNJFOC-20050301367

PATIENT
  Sex: Female

DRUGS (1)
  1. LEVAQUIN [Suspect]
     Dates: start: 20050202, end: 20050206

REACTIONS (3)
  - ASEPTIC NECROSIS BONE [None]
  - MONARTHRITIS [None]
  - OSTEOARTHRITIS [None]
